FAERS Safety Report 7926811-3 (Version None)
Quarter: 2011Q4

REPORT INFORMATION
  Report Type: 
  Country: None (occurrence: None)
  Receive Date: 20111118
  Receipt Date: 20111108
  Transmission Date: 20120403
  Serious: Yes (Hospitalization, Other)
  Sender: FDA-Public Use
  Company Number: US-BAYER-2011-049633

PATIENT
  Age: 31 Year
  Sex: Female

DRUGS (9)
  1. YAZ [Suspect]
     Indication: ACNE
  2. PROAIR HFA [Concomitant]
     Dosage: UNK
     Dates: start: 20080301
  3. AZITHROMYCIN [Concomitant]
     Dosage: UNK
     Dates: start: 20080219
  4. OGESTREL 0.5/50-21 [Concomitant]
     Indication: CONTRACEPTION
     Dosage: UNK
     Dates: start: 20080201, end: 20080401
  5. YAZ [Suspect]
     Indication: PREMENSTRUAL SYNDROME
  6. YAZ [Suspect]
     Indication: CONTRACEPTION
     Dosage: UNK
     Route: 048
     Dates: start: 20070110, end: 20080109
  7. PAXIL [Concomitant]
  8. PAROXETINE HCL [Concomitant]
     Dosage: UNK
     Dates: start: 20080201, end: 20080501
  9. YAZ [Suspect]

REACTIONS (12)
  - INJURY [None]
  - MUSCULAR WEAKNESS [None]
  - DYSARTHRIA [None]
  - PAIN [None]
  - BALANCE DISORDER [None]
  - EMOTIONAL DISTRESS [None]
  - SPEECH DISORDER [None]
  - CEREBROVASCULAR ACCIDENT [None]
  - GENERAL PHYSICAL HEALTH DETERIORATION [None]
  - BIPOLAR DISORDER [None]
  - THROMBOSIS [None]
  - ANXIETY [None]
